FAERS Safety Report 7387158-X (Version None)
Quarter: 2011Q1

REPORT INFORMATION
  Report Type: 
  Country: None (occurrence: None)
  Receive Date: 20110331
  Receipt Date: 20110324
  Transmission Date: 20110831
  Serious: Yes (Hospitalization)
  Sender: FDA-Public Use
  Company Number: A0920583A

PATIENT
  Sex: Male

DRUGS (7)
  1. AMLODIPINE [Concomitant]
  2. PAXIL CR [Suspect]
     Indication: DEPRESSION
     Dosage: 40MG PER DAY
     Route: 048
     Dates: start: 20070901
  3. ATENOLOL [Concomitant]
  4. BENICAR [Concomitant]
  5. PAXIL [Concomitant]
  6. AMBIEN [Concomitant]
  7. ALLOPURINOL [Concomitant]

REACTIONS (1)
  - HERNIA REPAIR [None]
